FAERS Safety Report 9406812 (Version 2)
Quarter: 2013Q3

REPORT INFORMATION
  Report Type: Report from Study
  Country: DE (occurrence: DE)
  Receive Date: 20130718
  Receipt Date: 20130826
  Transmission Date: 20140515
  Serious: Yes (Other)
  Sender: FDA-Public Use
  Company Number: PHHY2013DE075285

PATIENT
  Sex: Male

DRUGS (2)
  1. FTY 720 [Suspect]
     Indication: MULTIPLE SCLEROSIS
     Dosage: 0.5 MG, QD
     Route: 048
     Dates: start: 20130410
  2. LAMOTRIGINE [Concomitant]
     Indication: GRAND MAL CONVULSION
     Dosage: 100 MG, BID
     Route: 048
     Dates: start: 20081201

REACTIONS (1)
  - Blood potassium decreased [Recovered/Resolved]
